FAERS Safety Report 19891093 (Version 1)
Quarter: 2021Q3

REPORT INFORMATION
  Report Type: Spontaneous
  Country: US (occurrence: US)
  Receive Date: 20210928
  Receipt Date: 20210928
  Transmission Date: 20211014
  Serious: Yes (Other)
  Sender: FDA-Public Use
  Company Number: US-PFIZER INC-202101213214

PATIENT
  Age: 21 Year
  Sex: Female
  Weight: 70.3 kg

DRUGS (5)
  1. XULANE [Concomitant]
     Active Substance: ETHINYL ESTRADIOL\NORELGESTROMIN
  2. LEVOTHYROXINE. [Concomitant]
     Active Substance: LEVOTHYROXINE
  3. SPIRONOLACTONE. [Suspect]
     Active Substance: SPIRONOLACTONE
     Indication: DIURETIC THERAPY
     Dosage: 50 MG, 4X/DAY
     Route: 048
     Dates: start: 20210731
  4. KORLYM [Suspect]
     Active Substance: MIFEPRISTONE
     Indication: CUSHING^S SYNDROME
     Dosage: 300 MG, 4X/DAY
     Route: 048
     Dates: start: 20210730, end: 20210807
  5. KORLYM [Suspect]
     Active Substance: MIFEPRISTONE
     Dosage: 300 UNK
     Route: 048
     Dates: start: 20210818

REACTIONS (6)
  - Epstein-Barr virus infection [Unknown]
  - Joint swelling [Unknown]
  - Drug eruption [Recovered/Resolved]
  - Amenorrhoea [Unknown]
  - Urticaria [Recovered/Resolved]
  - Rash [Recovered/Resolved]

NARRATIVE: CASE EVENT DATE: 20210806
